FAERS Safety Report 6179053-9 (Version None)
Quarter: 2009Q2

REPORT INFORMATION
  Report Type: 
  Country: None (occurrence: None)
  Receive Date: 20090505
  Receipt Date: 20090423
  Transmission Date: 20091009
  Serious: Yes (Other)
  Sender: FDA-Public Use
  Company Number: PHHY2009IT15329

PATIENT
  Age: 70 Year
  Sex: Female

DRUGS (2)
  1. PAMIDRONATE DISODIUM [Suspect]
     Dosage: 1710 MG CUMULATIVE DOSE
  2. ZOLEDRONIC ACID [Suspect]
     Dosage: 88 MG CUMULATIVE DOSE

REACTIONS (4)
  - DENTAL IMPLANTATION [None]
  - JAW OPERATION [None]
  - ORAL PAIN [None]
  - OSTEONECROSIS [None]
